FAERS Safety Report 7296161-X (Version None)
Quarter: 2011Q1

REPORT INFORMATION
  Report Type: 
  Country: None (occurrence: None)
  Receive Date: 20110216
  Receipt Date: 20110208
  Transmission Date: 20110831
  Serious: Yes (Hospitalization)
  Sender: FDA-Public Use
  Company Number: US-AMGEN-USASP2011007584

PATIENT
  Age: 83 Year
  Sex: Female

DRUGS (1)
  1. PROLIA [Suspect]
     Indication: OSTEOPOROSIS POSTMENOPAUSAL
     Dates: start: 20100901

REACTIONS (7)
  - MYALGIA [None]
  - LUPUS-LIKE SYNDROME [None]
  - ANTINUCLEAR ANTIBODY POSITIVE [None]
  - PERICARDITIS [None]
  - PLEURITIC PAIN [None]
  - RED BLOOD CELL SEDIMENTATION RATE INCREASED [None]
  - MYOCARDIAL INFARCTION [None]
